FAERS Safety Report 25749780 (Version 2)
Quarter: 2025Q3

REPORT INFORMATION
  Report Type: Spontaneous
  Country: US (occurrence: US)
  Receive Date: 20250902
  Receipt Date: 20250915
  Transmission Date: 20251021
  Serious: No
  Sender: ABBVIE
  Company Number: US-ABBVIE-6436168

PATIENT
  Age: 77 Year
  Sex: Male

DRUGS (1)
  1. LINZESS [Suspect]
     Active Substance: LINACLOTIDE
     Indication: Constipation
     Route: 048
     Dates: start: 202506

REACTIONS (8)
  - Abdominal pain upper [Not Recovered/Not Resolved]
  - Bowel movement irregularity [Unknown]
  - Drug ineffective [Unknown]
  - Poor quality sleep [Unknown]
  - Loss of personal independence in daily activities [Unknown]
  - Fatigue [Not Recovered/Not Resolved]
  - Insomnia [Not Recovered/Not Resolved]
  - Diarrhoea [Unknown]

NARRATIVE: CASE EVENT DATE: 20250101
